FAERS Safety Report 13242600 (Version 1)
Quarter: 2017Q1

REPORT INFORMATION
  Report Type: Spontaneous
  Country: IE (occurrence: IE)
  Receive Date: 20170217
  Receipt Date: 20170217
  Transmission Date: 20170428
  Serious: Yes (Other)
  Sender: FDA-Public Use
  Company Number: IE-PFIZER INC-3182456

PATIENT
  Age: 63 Year
  Sex: Female

DRUGS (16)
  1. LYRICA [Concomitant]
     Active Substance: PREGABALIN
     Indication: NEURALGIA
     Dosage: UNK (AT NIGHT)
     Route: 048
  2. METHOTREXATE SODIUM. [Interacting]
     Active Substance: METHOTREXATE SODIUM
     Dosage: 20 MG, IN 0.8 ML SYRINGE
     Route: 058
  3. SINEMET [Concomitant]
     Active Substance: CARBIDOPA\LEVODOPA
     Indication: PARKINSON^S DISEASE
     Dosage: 5 DF, 1X/DAY (FREQ: 5 DAY; INTERVAL: 1)
     Route: 048
  4. METHOTREXATE SODIUM. [Interacting]
     Active Substance: METHOTREXATE SODIUM
     Dosage: 20 MG, IN 0.8 ML SYRINGE.
     Route: 058
  5. METHOTREXATE SODIUM. [Interacting]
     Active Substance: METHOTREXATE SODIUM
     Dosage: 20 MG, IN 0.8 ML SYRINGE
     Route: 058
  6. DIFENE [Interacting]
     Active Substance: DICLOFENAC SODIUM
     Indication: PAIN
     Dosage: UNK
  7. SALAZOPYRIN [Concomitant]
     Active Substance: SULFASALAZINE
     Indication: RHEUMATOID ARTHRITIS
     Dosage: 500 MG, 2X/DAY (500 MG, FREQ: 2 DAY; INTERVAL: 1)
     Route: 048
  8. PARACETAMOL [Concomitant]
     Active Substance: ACETAMINOPHEN
     Dosage: UNK
  9. PROPRANOL [Concomitant]
     Active Substance: PROPRANOLOL HYDROCHLORIDE
     Indication: BLOOD PRESSURE MEASUREMENT
     Dosage: 80 MG, 1X/DAY (80 MG, FREQ: 1 DAY; INTERVAL: 1)
     Route: 048
  10. ROPINIROLE. [Concomitant]
     Active Substance: ROPINIROLE
     Indication: PARKINSON^S DISEASE
     Dosage: 2 MG, 1X/DAY (2 MG, FREQ: 1 DAY; INTERVAL: 1)
     Route: 048
  11. ESOMEPRAZOLE [Concomitant]
     Active Substance: ESOMEPRAZOLE
     Indication: GASTRIC DISORDER
     Dosage: UNK, 1X/DAY (FREQ: 1 DAY; INTERVAL: 1)
     Route: 048
  12. ROPINIROLE. [Concomitant]
     Active Substance: ROPINIROLE
     Dosage: 8 MG, 1X/DAY8 MG, UNK (8 MG, FREQ: 1 DAY; INTERVAL: 1)
     Route: 048
  13. METHOTREXATE SODIUM. [Suspect]
     Active Substance: METHOTREXATE SODIUM
     Indication: RHEUMATOID ARTHRITIS
     Dosage: 20 MG, UNK (20 MG, IN 0.8 ML SYRINGE, FREQ: 1 WEEK; INTERVAL: 1)
     Route: 058
  14. METHOTREXATE SODIUM. [Interacting]
     Active Substance: METHOTREXATE SODIUM
     Dosage: 20 MG, IN 0.8 ML SYRINGE
     Route: 058
  15. CENTYL K [Concomitant]
     Indication: BLOOD PRESSURE MEASUREMENT
     Dosage: UNK (MANE)
     Route: 048
  16. RASAGILINE [Concomitant]
     Active Substance: RASAGILINE
     Indication: PARKINSON^S DISEASE
     Dosage: UNK, 1X/DAY
     Route: 048

REACTIONS (4)
  - Drug interaction [Unknown]
  - Injection site erythema [Unknown]
  - Skin ulcer [Recovered/Resolved]
  - Skin ulcer [Unknown]

NARRATIVE: CASE EVENT DATE: 20160215
